FAERS Safety Report 16063433 (Version 1)
Quarter: 2019Q1

REPORT INFORMATION
  Report Type: Spontaneous
  Country: CN (occurrence: CN)
  Receive Date: 20190312
  Receipt Date: 20190312
  Transmission Date: 20190418
  Serious: Yes (Other)
  Sender: FDA-Public Use
  Company Number: CN-BAXTER-2019BAX004711

PATIENT
  Age: 53 Year
  Sex: Female
  Weight: 90 kg

DRUGS (4)
  1. STERILE WATER FOR INJECTION [Suspect]
     Active Substance: WATER
     Indication: MEDICATION DILUTION
     Dosage: WATER FOR INJECTION 40ML+EPIRUBICIN INJECTION 80 MG
     Route: 041
     Dates: start: 20190220, end: 20190220
  2. 0.9% SODIUM CHLORIDE INJECTION [Suspect]
     Active Substance: SODIUM CHLORIDE
     Indication: MEDICATION DILUTION
     Dosage: 0.9% NS 50ML+CYCLOPHOSPHAMIDE INJECTION 1G
     Route: 041
     Dates: start: 20190220, end: 20190220
  3. AI DA SHENG [EPIRUBICIN HYDROCHLORIDE] [Suspect]
     Active Substance: EPIRUBICIN HYDROCHLORIDE
     Indication: BREAST CANCER FEMALE
     Dosage: WATER FOR INJECTION 40ML+EPIRUBICIN INJECTION 80 MG
     Route: 041
     Dates: start: 20190220, end: 20190220
  4. ENDOXAN [Suspect]
     Active Substance: CYCLOPHOSPHAMIDE
     Indication: BREAST CANCER FEMALE
     Dosage: DOSAGE FORM: INJECTION, 0.9% NS 50 ML+CYCLOPHOSPHAMIDE INJECTION 1G
     Route: 041
     Dates: start: 20190220, end: 20190220

REACTIONS (1)
  - Bone marrow failure [Recovered/Resolved]

NARRATIVE: CASE EVENT DATE: 20190226
